FAERS Safety Report 9863861 (Version 1)
Quarter: 2014Q1

REPORT INFORMATION
  Report Type: Spontaneous
  Country: IT (occurrence: IT)
  Receive Date: 20140203
  Receipt Date: 20140203
  Transmission Date: 20141002
  Serious: Yes (Death, Hospitalization, Other)
  Sender: FDA-Public Use
  Company Number: IT-009507513-1401ITA013990

PATIENT
  Age: 61 Year
  Sex: Male

DRUGS (4)
  1. VICTRELIS [Suspect]
     Indication: HEPATITIS C
     Dosage: UNK
     Route: 048
     Dates: start: 20130412, end: 20131211
  2. PEGASYS [Suspect]
     Indication: HEPATITIS C
     Dosage: UNK
     Dates: start: 20130412, end: 20131211
  3. COPEGUS [Suspect]
     Indication: HEPATITIS C
     Dosage: UNK
     Dates: start: 20130412, end: 20131211
  4. INSULIN [Concomitant]
     Indication: DIABETES MELLITUS

REACTIONS (6)
  - Pneumonia [Fatal]
  - Cholecystectomy [Fatal]
  - Cholecystitis infective [Fatal]
  - Respiratory failure [Fatal]
  - Pyrexia [Fatal]
  - Tracheostomy [Unknown]
